FAERS Safety Report 15995237 (Version 3)
Quarter: 2019Q2

REPORT INFORMATION
  Report Type: Spontaneous
  Country: JP (occurrence: JP)
  Receive Date: 20190222
  Receipt Date: 20190405
  Transmission Date: 20190711
  Serious: Yes (Disabling, Other)
  Sender: FDA-Public Use
  Company Number: JP-AMGEN-JPNSP2019026405

PATIENT
  Age: 45 Year
  Sex: Male

DRUGS (14)
  1. TENELIA [Concomitant]
     Active Substance: TENELIGLIPTIN
     Dosage: 20 MG, QD
  2. LASIX [Concomitant]
     Active Substance: FUROSEMIDE
     Dosage: 40 MG, QD
  3. AZILVA [Concomitant]
     Active Substance: AZILSARTAN KAMEDOXOMIL
     Dosage: 40 MG, QD
  4. FOSRENOL [Concomitant]
     Active Substance: LANTHANUM CARBONATE
     Dosage: 750 MG, QD
  5. MAINTATE [Concomitant]
     Active Substance: BISOPROLOL FUMARATE
     Dosage: 2.5 MG, QD
  6. REMITCH [Concomitant]
     Active Substance: NALFURAFINE HYDROCHLORIDE
     Dosage: 2.5 MUG, QD
  7. NEXIUM [Concomitant]
     Active Substance: ESOMEPRAZOLE MAGNESIUM
     Dosage: 10 MG, QD
  8. BAYASPIRIN [Concomitant]
     Active Substance: ASPIRIN
     Dosage: 100 MG, QD
  9. PRECIPITATED CALCIUM CARBONATE [Concomitant]
     Active Substance: CALCIUM CARBONATE
     Dosage: 1500 MG, QD
  10. REPATHA [Suspect]
     Active Substance: EVOLOCUMAB
     Indication: TYPE IIA HYPERLIPIDAEMIA
     Dosage: 140 MG, UNK
     Route: 058
     Dates: start: 20171002
  11. CRESTOR [Concomitant]
     Active Substance: ROSUVASTATIN CALCIUM
     Dosage: 5 MG, QD
  12. WARFARIN [Concomitant]
     Active Substance: WARFARIN
     Dosage: 1.5 MG, QD
  13. FEBURIC [Concomitant]
     Active Substance: FEBUXOSTAT
     Dosage: 10 MG, QD
  14. ZETIA [Concomitant]
     Active Substance: EZETIMIBE
     Dosage: 10 MG, QD

REACTIONS (1)
  - Chronic kidney disease [Not Recovered/Not Resolved]

NARRATIVE: CASE EVENT DATE: 20190208
